FAERS Safety Report 17321527 (Version 1)
Quarter: 2020Q1

REPORT INFORMATION
  Report Type: Spontaneous
  Country: FR (occurrence: FR)
  Receive Date: 20200127
  Receipt Date: 20200127
  Transmission Date: 20200409
  Serious: Yes (Hospitalization)
  Sender: FDA-Public Use
  Company Number: FR-ADVANZ PHARMA-202001000364

PATIENT

DRUGS (8)
  1. ZONISAMIDE. [Suspect]
     Active Substance: ZONISAMIDE
     Dosage: 175 MG, QD CAPSULE (175 MG DAILY) 100 MG IN THE MORNING AND 75 MG IN THE EVENING)
     Route: 048
     Dates: start: 201911, end: 202001
  2. FYCOMPA [Suspect]
     Active Substance: PERAMPANEL
     Indication: EPILEPSY
     Dosage: 6 MG, QD
     Route: 048
  3. VIMPAT [Concomitant]
     Active Substance: LACOSAMIDE
     Indication: EPILEPSY
     Dosage: UNK UNK, QD (300 DF DAILY) 100 DF IN THE MORNING, AT 50 DF AT NOON, AND AT 150 DF IN THE EVENING
     Route: 065
  4. URBANYL [Concomitant]
     Active Substance: CLOBAZAM
     Indication: EPILEPSY
     Dosage: UNK, QD (30 DF DAILY) 10 DF IN THE MORNING, 10 DF AT NOON AND 10 DF IN THE EVENING
     Route: 065
  5. ZONISAMIDE. [Suspect]
     Active Substance: ZONISAMIDE
     Dosage: 100 MG, QD CAPSULE, 50 MG IN THE MORNING AND 50 MG IN THE EVENING
     Route: 048
     Dates: start: 202001
  6. ZONISAMIDE. [Suspect]
     Active Substance: ZONISAMIDE
     Indication: EPILEPSY
     Dosage: 50 MG, QD, CAPSULES
     Route: 048
     Dates: start: 201811, end: 201911
  7. DEPAKINE CHRONO [Concomitant]
     Active Substance: VALPROATE SODIUM
     Indication: EPILEPSY
     Dosage: 750 DF DAILY, 500 DF IN THE MORNING AND 250 DF IN THE EVENING
     Route: 065
  8. LAMICTAL [Concomitant]
     Active Substance: LAMOTRIGINE
     Indication: EPILEPSY
     Dosage: UNK, QD (300 DF DAILY) 150 DF IN THE MORNING AND 150 DF IN THE EVENING
     Route: 065

REACTIONS (4)
  - Bronchitis [Unknown]
  - Neurological decompensation [Unknown]
  - Weight decreased [Unknown]
  - Motor dysfunction [Unknown]

NARRATIVE: CASE EVENT DATE: 201912
